FAERS Safety Report 4458132-8 (Version None)
Quarter: 2004Q3

REPORT INFORMATION
  Report Type: 
  Country: None (occurrence: None)
  Receive Date: 20040924
  Receipt Date: 20040728
  Transmission Date: 20050211
  Serious: Yes (Other)
  Sender: FDA-Public Use
  Company Number: JP-GLAXOSMITHKLINE-B0341139A

PATIENT
  Age: 73 Year
  Sex: Male

DRUGS (10)
  1. ZANTAC [Suspect]
     Dates: start: 20030501, end: 20030501
  2. ANTIVENOM [Suspect]
     Indication: SNAKE BITE
     Dosage: 3000IU PER DAY
     Route: 042
     Dates: start: 20040508, end: 20040508
  3. CEPHARANTHIN [Concomitant]
     Indication: SNAKE BITE
     Dosage: 10MG PER DAY
     Route: 042
     Dates: start: 20040508, end: 20040508
  4. XYLOCAINE [Concomitant]
     Indication: SNAKE BITE
     Dosage: 10ML PER DAY
     Route: 065
     Dates: start: 20040508, end: 20040508
  5. SOLU-MEDROL [Concomitant]
     Indication: SNAKE BITE
     Dosage: 500MG PER DAY
     Route: 042
     Dates: start: 20040508, end: 20040508
  6. GASTER [Concomitant]
     Indication: STRESS ULCER
     Dosage: 20MG PER DAY
     Route: 042
     Dates: start: 20040509, end: 20040509
  7. DOPAMINE HYDROCHLORIDE [Concomitant]
     Route: 065
     Dates: start: 20030508
  8. EPINEPHRINE [Concomitant]
     Route: 065
     Dates: start: 20030508
  9. NORADRENALINE [Concomitant]
     Route: 065
     Dates: start: 20030508
  10. DIALYSIS [Concomitant]
     Route: 065

REACTIONS (5)
  - ANAPHYLACTIC SHOCK [None]
  - CARDIOPULMONARY FAILURE [None]
  - HYPOXIC ENCEPHALOPATHY [None]
  - RENAL FAILURE ACUTE [None]
  - VASOCONSTRICTION [None]
